FAERS Safety Report 25248943 (Version 2)
Quarter: 2025Q2

REPORT INFORMATION
  Report Type: Spontaneous
  Country: US (occurrence: US)
  Receive Date: 20250429
  Receipt Date: 20250509
  Transmission Date: 20250716
  Serious: Yes (Hospitalization, Other)
  Sender: TEVA
  Company Number: US-TEVA-VS-3324930

PATIENT
  Age: 75 Year
  Sex: Male

DRUGS (1)
  1. SULFAMETHOXAZOLE\TRIMETHOPRIM [Suspect]
     Active Substance: SULFAMETHOXAZOLE\TRIMETHOPRIM
     Indication: Urinary tract infection
     Route: 065

REACTIONS (7)
  - Nausea [Unknown]
  - Vomiting [Recovering/Resolving]
  - Nephropathy toxic [Unknown]
  - Impaired gastric emptying [Unknown]
  - Necrotising oesophagitis [Recovering/Resolving]
  - Ileus [Unknown]
  - Duodenitis [Unknown]
